FAERS Safety Report 14997372 (Version 2)
Quarter: 2018Q3

REPORT INFORMATION
  Report Type: Spontaneous
  Country: US (occurrence: US)
  Receive Date: 20180611
  Receipt Date: 20180703
  Transmission Date: 20181010
  Serious: No
  Sender: FDA-Public Use
  Company Number: US-BEH-2018091482

PATIENT
  Age: 53 Year
  Sex: Female
  Weight: 55.78 kg

DRUGS (33)
  1. HIZENTRA [Suspect]
     Active Substance: HUMAN IMMUNOGLOBULIN G
     Dosage: UNK
     Route: 058
  2. LIDOCAINE/PRILOCAINE [Concomitant]
     Active Substance: LIDOCAINE\PRILOCAINE
  3. VITAMIN D3 [Concomitant]
     Active Substance: CHOLECALCIFEROL
  4. PERCOCET                           /00446701/ [Concomitant]
     Active Substance: ACETAMINOPHEN\OXYCODONE HYDROCHLORIDE\OXYCODONE TEREPHTHALATE
  5. HIZENTRA [Suspect]
     Active Substance: HUMAN IMMUNOGLOBULIN G
     Dosage: UNK, QW
     Route: 058
     Dates: start: 20171226
  6. HIZENTRA [Suspect]
     Active Substance: HUMAN IMMUNOGLOBULIN G
     Dosage: UNK
     Route: 058
  7. HYDROCHLOROTHIAZIDE. [Concomitant]
     Active Substance: HYDROCHLOROTHIAZIDE
  8. ESTRACE [Concomitant]
     Active Substance: ESTRADIOL
  9. CARVEDILOL. [Concomitant]
     Active Substance: CARVEDILOL
  10. FLUTICASONE. [Concomitant]
     Active Substance: FLUTICASONE
  11. SOMA [Concomitant]
     Active Substance: CARISOPRODOL
  12. ANIMI?3 [Concomitant]
     Active Substance: CHOLECALCIFEROL\CYANOCOBALAMIN\DOCONEXENT\FOLIC ACID\ICOSAPENT\OMEGA-3 FATTY ACIDS\PYRIDOXINE HYDROCHLORIDE\SOY STEROL
  13. PROBIOTIC                          /06395501/ [Concomitant]
     Active Substance: BIFIDOBACTERIUM ANIMALIS LACTIS
  14. TESTOSTERONE. [Concomitant]
     Active Substance: TESTOSTERONE
  15. ZINC. [Concomitant]
     Active Substance: ZINC
  16. VITAMIN C [Concomitant]
     Active Substance: ASCORBIC ACID
  17. LUNESTA [Concomitant]
     Active Substance: ESZOPICLONE
  18. PROGESTERONE. [Concomitant]
     Active Substance: PROGESTERONE
  19. LOSARTAN AND HYDROCHLOROTHIAZIDE [Concomitant]
     Active Substance: HYDROCHLOROTHIAZIDE\LOSARTAN POTASSIUM
  20. MAGNESIUM [Concomitant]
     Active Substance: MAGNESIUM
  21. ADVAIR HFA [Concomitant]
     Active Substance: FLUTICASONE PROPIONATE\SALMETEROL XINAFOATE
  22. VIVELLE?DOT [Concomitant]
     Active Substance: ESTRADIOL
  23. VITAMIN A                          /00056001/ [Concomitant]
     Active Substance: RETINOL
  24. DIPHENHYDRAMINE. [Concomitant]
     Active Substance: DIPHENHYDRAMINE
  25. EPINEPHRINE. [Concomitant]
     Active Substance: EPINEPHRINE
  26. AZELASTINE. [Concomitant]
     Active Substance: AZELASTINE HYDROCHLORIDE
  27. DHEA [Concomitant]
     Active Substance: PRASTERONE
  28. HIZENTRA [Suspect]
     Active Substance: HUMAN IMMUNOGLOBULIN G
     Indication: SELECTIVE IGG SUBCLASS DEFICIENCY
     Dosage: 11 G, EVERY 5 DAYS
     Route: 058
     Dates: start: 20180116
  29. ACETAMINOPHEN. [Concomitant]
     Active Substance: ACETAMINOPHEN
  30. LMX                                /00033401/ [Concomitant]
  31. CYMBALTA [Concomitant]
     Active Substance: DULOXETINE HYDROCHLORIDE
  32. SUDAFED [Concomitant]
     Active Substance: PSEUDOEPHEDRINE HYDROCHLORIDE
  33. TOPIRAMATE. [Concomitant]
     Active Substance: TOPIRAMATE

REACTIONS (7)
  - Infection [Unknown]
  - Immunoglobulins increased [Unknown]
  - Hyperproteinaemia [Unknown]
  - Sinusitis [Unknown]
  - Sunburn [Unknown]
  - Malaise [Unknown]
  - Ill-defined disorder [Unknown]
